FAERS Safety Report 12884399 (Version 1)
Quarter: 2016Q4

REPORT INFORMATION
  Report Type: Report from Study
  Country: US (occurrence: US)
  Receive Date: 20161026
  Receipt Date: 20161026
  Transmission Date: 20170207
  Serious: Yes (Hospitalization, Other)
  Sender: FDA-Public Use
  Company Number: US-ROCHE-1422648

PATIENT
  Age: 65 Year
  Sex: Male
  Weight: 77.4 kg

DRUGS (22)
  1. ATEZOLIZUMAB [Suspect]
     Active Substance: ATEZOLIZUMAB
     Indication: NEOPLASM
     Dosage: MOST RECENT DOSE PRIOR TO THROMBOCYTOPENIA WAS 1470 MG ON 5/JUN/2014?MOST RECENT DOSE PRIOR TO THROM
     Route: 042
     Dates: start: 20140605
  2. METOPROLOL SUCCINATE. [Concomitant]
     Active Substance: METOPROLOL SUCCINATE
     Indication: HYPERTENSION
     Dosage: REPORTED AS: METOPROLOL SUCCINATE ER
     Route: 048
  3. COMPAZINE [Concomitant]
     Active Substance: PROCHLORPERAZINE MALEATE
     Indication: NAUSEA
     Route: 048
     Dates: start: 20140626
  4. VITAMIN D3 [Concomitant]
     Active Substance: CHOLECALCIFEROL
     Indication: NUTRITIONAL SUPPLEMENTATION
     Dosage: 400 UNITS
     Route: 048
  5. MARINOL (UNITED STATES) [Concomitant]
     Indication: WEIGHT DECREASED
     Route: 048
     Dates: start: 20140828
  6. ADENOSINE. [Concomitant]
     Active Substance: ADENOSINE
     Indication: ARRHYTHMIA
     Route: 065
     Dates: start: 20141011, end: 20141011
  7. ZOLOFT [Concomitant]
     Active Substance: SERTRALINE HYDROCHLORIDE
     Indication: DEPRESSION
     Route: 048
     Dates: start: 201409
  8. MORPHINE [Concomitant]
     Active Substance: MORPHINE
     Indication: DYSPNOEA
     Route: 042
     Dates: start: 20141014, end: 20141014
  9. NAB-PACLITAXEL [Suspect]
     Active Substance: PACLITAXEL
     Indication: NEOPLASM
     Dosage: THE MOST RECENT DOSE RECEIVED PRIOR TO THE ONSET OF FIRST EPISODE OF THROMBOCYTOPENTIA WAS ON 05/JUN
     Route: 042
     Dates: start: 20140605
  10. ZOMETA [Concomitant]
     Active Substance: ZOLEDRONIC ACID
     Indication: METASTASES TO BONE
     Route: 042
     Dates: start: 20140605
  11. K-PHOS [Concomitant]
     Active Substance: POTASSIUM PHOSPHATE, MONOBASIC
     Indication: HYPOPHOSPHATAEMIA
     Route: 048
     Dates: start: 20140724
  12. ACYCLOVIR. [Concomitant]
     Active Substance: ACYCLOVIR
     Indication: GENITAL HERPES
     Route: 048
  13. AMLODIPINE BESYLATE. [Concomitant]
     Active Substance: AMLODIPINE BESYLATE
     Indication: HYPERTENSION
     Route: 048
  14. CRESTOR [Concomitant]
     Active Substance: ROSUVASTATIN CALCIUM
     Indication: HYPERLIPIDAEMIA
     Route: 048
  15. ZOFRAN [Concomitant]
     Active Substance: ONDANSETRON HYDROCHLORIDE
     Indication: PREMEDICATION
     Route: 042
     Dates: start: 20140605
  16. OXYCODONE [Concomitant]
     Active Substance: OXYCODONE
     Indication: MUSCULOSKELETAL CHEST PAIN
     Route: 048
     Dates: start: 20140626
  17. METOPROLOL. [Concomitant]
     Active Substance: METOPROLOL
     Indication: ARRHYTHMIA
     Route: 065
     Dates: start: 20141012, end: 20141012
  18. CARBOPLATIN. [Suspect]
     Active Substance: CARBOPLATIN
     Indication: NEOPLASM
     Dosage: THE MOST RECENT DOSE RECEIVED PRIOR TO THE ONSET OF FIRST EPISODE OF THROMBOCYTOPENTIA WAS ON 05/JUN
     Route: 042
     Dates: start: 20140605
  19. TYLENOL [Concomitant]
     Active Substance: ACETAMINOPHEN
     Route: 042
     Dates: start: 20140619, end: 20140619
  20. VITAMIN B12 [Concomitant]
     Active Substance: CYANOCOBALAMIN
     Route: 030
     Dates: start: 20140918, end: 20140918
  21. ZOFRAN [Concomitant]
     Active Substance: ONDANSETRON HYDROCHLORIDE
     Indication: NAUSEA
     Route: 048
     Dates: start: 20140607
  22. BENADRYL [Concomitant]
     Active Substance: DIPHENHYDRAMINE HYDROCHLORIDE
     Route: 042
     Dates: start: 20140619, end: 20140619

REACTIONS (4)
  - Thrombocytopenia [Not Recovered/Not Resolved]
  - Anaemia [Not Recovered/Not Resolved]
  - Thrombocytopenia [Recovered/Resolved]
  - Embolism [Not Recovered/Not Resolved]

NARRATIVE: CASE EVENT DATE: 20140619
